FAERS Safety Report 9367014 (Version 3)
Quarter: 2013Q3

REPORT INFORMATION
  Report Type: Spontaneous
  Country: US (occurrence: US)
  Receive Date: 20130625
  Receipt Date: 20130712
  Transmission Date: 20140515
  Serious: Yes (Death, Hospitalization, Other)
  Sender: FDA-Public Use
  Company Number: US-BAXTER-2013BAX023335

PATIENT
  Age: 57 Year
  Sex: Female

DRUGS (1)
  1. DIANEAL LOW CALCIUM [Suspect]
     Indication: PERITONEAL DIALYSIS
     Route: 033
     Dates: start: 201112

REACTIONS (4)
  - Brain injury [Fatal]
  - Metastatic renal cell carcinoma [Recovering/Resolving]
  - Pulmonary oedema [Recovering/Resolving]
  - Infection [Not Recovered/Not Resolved]
